FAERS Safety Report 10006472 (Version 1)
Quarter: 2014Q1

REPORT INFORMATION
  Report Type: Spontaneous
  Country: US (occurrence: None)
  Receive Date: 20140312
  Receipt Date: 20140312
  Transmission Date: 20141002
  Serious: Yes (Other)
  Sender: FDA-Public Use
  Company Number: None

PATIENT
  Age: 35 Year
  Sex: Male
  Weight: 86.18 kg

DRUGS (1)
  1. AZATHIOPRINE [Suspect]
     Indication: UVEITIS
     Dosage: 1 PILL TWICE DAILY TAKEN BY MOUTH
     Route: 048
     Dates: start: 20140201, end: 20140301

REACTIONS (4)
  - Nausea [None]
  - Vomiting [None]
  - Purging [None]
  - Diarrhoea [None]
